FAERS Safety Report 12976876 (Version 4)
Quarter: 2017Q2

REPORT INFORMATION
  Report Type: Report from Study
  Country: GB (occurrence: GB)
  Receive Date: 20161128
  Receipt Date: 20170406
  Transmission Date: 20170830
  Serious: Yes (Other)
  Sender: FDA-Public Use
  Company Number: PHFR2016GB009371

PATIENT
  Sex: Female

DRUGS (1)
  1. SANDOSTATIN LAR DEPOT [Suspect]
     Active Substance: OCTREOTIDE ACETATE
     Indication: PRODUCT USED FOR UNKNOWN INDICATION
     Dosage: 30 MG, UNK
     Route: 030
     Dates: start: 20151022

REACTIONS (10)
  - Malaise [Unknown]
  - Haematuria [Unknown]
  - Overdose [Unknown]
  - Productive cough [Unknown]
  - Depressed mood [Recovering/Resolving]
  - Suicidal ideation [Unknown]
  - Lower respiratory tract infection [Not Recovered/Not Resolved]
  - Sputum discoloured [Unknown]
  - Influenza like illness [Unknown]
  - Chromaturia [Recovered/Resolved]
